FAERS Safety Report 5030100-7 (Version None)
Quarter: 2006Q2

REPORT INFORMATION
  Report Type: 
  Country: None (occurrence: None)
  Receive Date: 20060614
  Receipt Date: 20060606
  Transmission Date: 20061013
  Serious: Yes (Hospitalization, Other)
  Sender: FDA-Public Use
  Company Number: 2006-06-0187

PATIENT
  Age: 26 Year
  Sex: Female
  Weight: 60 kg

DRUGS (1)
  1. CELESTONE SOLUSPAN [Suspect]
     Indication: JOINT SPRAIN
     Dosage: 1 AMPOULE QD
     Dates: start: 20060601, end: 20060601

REACTIONS (1)
  - DIPLEGIA [None]
